FAERS Safety Report 10048514 (Version 1)
Quarter: 2014Q1

REPORT INFORMATION
  Report Type: Spontaneous
  Country: BR (occurrence: BR)
  Receive Date: 20140331
  Receipt Date: 20140331
  Transmission Date: 20141002
  Serious: Yes (Other)
  Sender: FDA-Public Use
  Company Number: BR-BRISTOL-MYERS SQUIBB COMPANY-20573036

PATIENT
  Sex: Female

DRUGS (1)
  1. GLIFAGE [Suspect]
     Indication: DIABETES MELLITUS

REACTIONS (2)
  - Dengue fever [Not Recovered/Not Resolved]
  - Eating disorder [Not Recovered/Not Resolved]
